FAERS Safety Report 4699674-X (Version None)
Quarter: 2005Q2

REPORT INFORMATION
  Report Type: 
  Country: None (occurrence: None)
  Receive Date: 20050623
  Receipt Date: 20050420
  Transmission Date: 20051028
  Serious: Yes (Other)
  Sender: FDA-Public Use
  Company Number: 2005S1000134

PATIENT
  Age: 20 Year
  Sex: Female

DRUGS (5)
  1. ACITRETIN (ACITRETIN) (10 MG) [Suspect]
     Indication: ERYTHROKERATODERMIA VARIABILIS
     Dosage: 30 MG;QD;PO
     Route: 048
     Dates: start: 19900101, end: 20050301
  2. ACITRETIN (ACITRETIN) (10 MG) [Suspect]
     Indication: ERYTHROKERATODERMIA VARIABILIS
     Dosage: 30 MG;QD;PO
     Route: 048
     Dates: start: 20050301, end: 20050413
  3. ACITRETIN (ACITRETIN) (10 MG) [Suspect]
     Indication: ERYTHROKERATODERMIA VARIABILIS
     Dosage: 10 MG;QD;PO
     Route: 048
     Dates: start: 20050414
  4. SPORANOX [Concomitant]
  5. MULTIVIT [Concomitant]

REACTIONS (2)
  - NEUTROPENIA [None]
  - WEIGHT DECREASED [None]
